FAERS Safety Report 12203448 (Version 1)
Quarter: 2016Q1

REPORT INFORMATION
  Report Type: Spontaneous
  Country: US (occurrence: None)
  Receive Date: 20160322
  Receipt Date: 20160322
  Transmission Date: 20160526
  Serious: Yes (Other)
  Sender: FDA-Public Use
  Company Number: None

PATIENT
  Age: 69 Year
  Sex: Female
  Weight: 104.33 kg

DRUGS (9)
  1. PRED-MOXI-BROM (PREDNISONE-MOXIFLOXACIN-BROMFENAC [Suspect]
     Active Substance: BROMFENAC\MOXIFLOXACIN\PREDNISONE
     Indication: CATARACT OPERATION
     Dosage: 1 THREE TIMES DAILY INTO THE EYE
     Route: 031
     Dates: start: 20160303, end: 20160318
  2. CARVEDILOL. [Concomitant]
     Active Substance: CARVEDILOL
  3. LIPITOR [Concomitant]
     Active Substance: ATORVASTATIN CALCIUM
  4. IBUPROFEN. [Concomitant]
     Active Substance: IBUPROFEN
  5. BENADRYL [Concomitant]
     Active Substance: DIPHENHYDRAMINE HYDROCHLORIDE
  6. HUMULIN NOS [Concomitant]
     Active Substance: INSULIN HUMAN
  7. HYDRALAZINE [Concomitant]
     Active Substance: HYDRALAZINE HYDROCHLORIDE
  8. FUROSEMIDE. [Concomitant]
     Active Substance: FUROSEMIDE
  9. LOSARTAN. [Concomitant]
     Active Substance: LOSARTAN

REACTIONS (5)
  - Urine odour abnormal [None]
  - Palpitations [None]
  - Chromaturia [None]
  - Back pain [None]
  - Drug ineffective [None]

NARRATIVE: CASE EVENT DATE: 20160303
